FAERS Safety Report 16453467 (Version 3)
Quarter: 2020Q1

REPORT INFORMATION
  Report Type: Spontaneous
  Country: US (occurrence: US)
  Receive Date: 20190619
  Receipt Date: 20200203
  Transmission Date: 20200409
  Serious: No
  Sender: FDA-Public Use
  Company Number: US-SA-2019SA163790

PATIENT
  Age: 48 Year
  Sex: Female

DRUGS (1)
  1. DUPIXENT [Suspect]
     Active Substance: DUPILUMAB
     Indication: PRODUCT USED FOR UNKNOWN INDICATION
     Dosage: 300 MG, QOW
     Route: 058
     Dates: start: 201905

REACTIONS (6)
  - Injection site reaction [Unknown]
  - Cough [Unknown]
  - Rash [Unknown]
  - Road traffic accident [Unknown]
  - Ligament sprain [Unknown]
  - Influenza [Unknown]

NARRATIVE: CASE EVENT DATE: 2019
